FAERS Safety Report 10537725 (Version 1)
Quarter: 2014Q4

REPORT INFORMATION
  Report Type: Spontaneous
  Country: JP (occurrence: None)
  Receive Date: 20141021
  Receipt Date: 20141021
  Transmission Date: 20150529
  Serious: Yes (Hospitalization)
  Sender: FDA-Public Use
  Company Number: FK201404115

PATIENT
  Age: 2 Year
  Sex: Female

DRUGS (2)
  1. VALPROATE [Suspect]
     Active Substance: VALPROATE SODIUM
     Indication: INFANTILE SPASMS
     Dosage: UNKNOWN, UNKNOWN
  2. CHEMOTHERAPY (CHEMOTHERAPEUTICS) [Concomitant]

REACTIONS (3)
  - Status epilepticus [None]
  - Anticonvulsant drug level below therapeutic [None]
  - Cerebral atrophy [None]
